FAERS Safety Report 5695309-8 (Version None)
Quarter: 2008Q2

REPORT INFORMATION
  Report Type: 
  Country: None (occurrence: None)
  Receive Date: 20080404
  Receipt Date: 20080331
  Transmission Date: 20081010
  Serious: Yes (Other)
  Sender: FDA-Public Use
  Company Number: US-PFIZER INC-2008028797

PATIENT
  Sex: Male
  Weight: 90.7 kg

DRUGS (3)
  1. XANAX [Suspect]
     Indication: ANXIETY
     Route: 048
  2. XANAX [Suspect]
     Indication: SLEEP DISORDER
  3. ADVIL [Concomitant]

REACTIONS (7)
  - CONVULSION [None]
  - DRUG DEPENDENCE [None]
  - DRUG INTOLERANCE [None]
  - EATING DISORDER [None]
  - HYPERTENSION [None]
  - HYPOAESTHESIA [None]
  - INSOMNIA [None]
